FAERS Safety Report 16278626 (Version 1)
Quarter: 2019Q2

REPORT INFORMATION
  Report Type: Spontaneous
  Country: US (occurrence: US)
  Receive Date: 20190506
  Receipt Date: 20190506
  Transmission Date: 20190711
  Serious: No
  Sender: FDA-Public Use
  Company Number: US-PFIZER INC-2019188248

PATIENT
  Age: 45 Year
  Sex: Female
  Weight: 68.27 kg

DRUGS (3)
  1. METHYLPREDNISOLONE. [Suspect]
     Active Substance: METHYLPREDNISOLONE
     Dosage: 2.5 MG, UNK
  2. METHYLPREDNISOLONE. [Suspect]
     Active Substance: METHYLPREDNISOLONE
     Indication: BASEDOW^S DISEASE
     Dosage: 10 MG, DAILY
  3. METHYLPREDNISOLONE. [Suspect]
     Active Substance: METHYLPREDNISOLONE
     Dosage: 5 MG, UNK

REACTIONS (4)
  - Product use in unapproved indication [Unknown]
  - Thyroid function test abnormal [Not Recovered/Not Resolved]
  - Goitre [Unknown]
  - Thyroid mass [Not Recovered/Not Resolved]
